FAERS Safety Report 16956004 (Version 1)
Quarter: 2019Q4

REPORT INFORMATION
  Report Type: Spontaneous
  Country: US (occurrence: US)
  Receive Date: 20190904
  Receipt Date: 20190904
  Transmission Date: 20200122
  Serious: Yes (Hospitalization)
  Sender: FDA-Public Use
  Company Number: None

PATIENT
  Age: 62 Year
  Sex: Female
  Weight: 117 kg

DRUGS (1)
  1. LENALIDOMIDE (CC-5013) [Suspect]
     Active Substance: LENALIDOMIDE
     Dates: end: 20190826

REACTIONS (4)
  - Diastolic dysfunction [None]
  - Single photon emission computerised tomogram abnormal [None]
  - Hypokalaemia [None]
  - Chest pain [None]

NARRATIVE: CASE EVENT DATE: 20190829
